FAERS Safety Report 9988243 (Version 1)
Quarter: 2014Q1

REPORT INFORMATION
  Report Type: Report from Study
  Country: CO (occurrence: CO)
  Receive Date: 20140309
  Receipt Date: 20140309
  Transmission Date: 20141002
  Serious: Yes (Death)
  Sender: FDA-Public Use
  Company Number: CO-ROCHE-1361774

PATIENT
  Age: 38 Year
  Sex: Male

DRUGS (1)
  1. DORNASE ALFA [Suspect]
     Indication: CYSTIC FIBROSIS
     Route: 048
     Dates: start: 20130802, end: 20140217

REACTIONS (1)
  - Disease progression [Fatal]
